FAERS Safety Report 6664615-2 (Version None)
Quarter: 2010Q2

REPORT INFORMATION
  Report Type: 
  Country: None (occurrence: None)
  Receive Date: 20100401
  Receipt Date: 20100318
  Transmission Date: 20101027
  Serious: Yes (Death, Hospitalization, Other)
  Sender: FDA-Public Use
  Company Number: CN-RB-027634-09

PATIENT
  Age: 49 Year
  Sex: Male
  Weight: 45 kg

DRUGS (2)
  1. BUPRENORPHINE HCL AND NALOXONE HCL [Suspect]
     Route: 060
     Dates: start: 20090319, end: 20091105
  2. WEI TAI [Concomitant]
     Indication: DRUG USE FOR UNKNOWN INDICATION
     Dosage: DOSING INFORMATION UNKNOWN
     Route: 065

REACTIONS (5)
  - ABDOMINAL PAIN UPPER [None]
  - ASTHENIA [None]
  - DECREASED APPETITE [None]
  - GASTRIC CANCER [None]
  - OEDEMA PERIPHERAL [None]
